FAERS Safety Report 8870254 (Version 1)
Quarter: 2012Q4

REPORT INFORMATION
  Report Type: Spontaneous
  Country: US (occurrence: None)
  Receive Date: 20121026
  Receipt Date: 20121026
  Transmission Date: 20130627
  Serious: Yes (Life-Threatening, Other)
  Sender: FDA-Public Use
  Company Number: None

PATIENT
  Age: 48 Year
  Sex: Female
  Weight: 74.84 kg

DRUGS (1)
  1. CYMBALTA [Suspect]
     Indication: FIBROMYALGIA
     Route: 048
     Dates: start: 20090101, end: 20121008

REACTIONS (4)
  - Drug dependence [None]
  - Withdrawal syndrome [None]
  - Mental disorder [None]
  - Drug effect decreased [None]
